FAERS Safety Report 16748971 (Version 1)
Quarter: 2019Q3

REPORT INFORMATION
  Report Type: Spontaneous
  Country: US (occurrence: US)
  Receive Date: 20190828
  Receipt Date: 20190828
  Transmission Date: 20191005
  Serious: Yes (Hospitalization, Other)
  Sender: FDA-Public Use
  Company Number: US-SA-2019SA236737

PATIENT
  Age: 35 Year
  Sex: Female

DRUGS (3)
  1. ALEMTUZUMAB [Suspect]
     Active Substance: ALEMTUZUMAB
     Indication: MULTIPLE SCLEROSIS
     Dosage: UNK
     Route: 041
  2. GENTAMICIN SULFATE. [Suspect]
     Active Substance: GENTAMICIN SULFATE
     Indication: LISTERIOSIS
  3. GENTAMICIN SULFATE. [Suspect]
     Active Substance: GENTAMICIN SULFATE
     Indication: MENINGOENCEPHALITIS BACTERIAL
     Dosage: UNK

REACTIONS (18)
  - Tachycardia [Unknown]
  - Pyrexia [Recovering/Resolving]
  - Tremor [Recovering/Resolving]
  - Paralysis [Recovering/Resolving]
  - Blood creatinine increased [Unknown]
  - Hydrocephalus [Recovering/Resolving]
  - Mental status changes [Recovering/Resolving]
  - Mydriasis [Recovering/Resolving]
  - Listeriosis [Unknown]
  - Dysarthria [Recovering/Resolving]
  - Muscular weakness [Recovering/Resolving]
  - Leukocytosis [Recovering/Resolving]
  - Pyuria [Unknown]
  - Pupil fixed [Recovering/Resolving]
  - Headache [Recovering/Resolving]
  - Transaminases increased [Unknown]
  - Unresponsive to stimuli [Recovering/Resolving]
  - Meningoencephalitis bacterial [Recovering/Resolving]
